FAERS Safety Report 10900628 (Version 2)
Quarter: 2015Q1

REPORT INFORMATION
  Report Type: Spontaneous
  Country: JP (occurrence: None)
  Receive Date: 20150303
  Receipt Date: 20150313
  Transmission Date: 20150721
  Serious: Yes (Hospitalization)
  Sender: FDA-Public Use
  Company Number: FK201501005

PATIENT
  Age: 55 Year
  Sex: Male

DRUGS (2)
  1. FLUOROURACIL (MANUFACTURER UNKNOWN) (FLUOROURACIL) (FLUOROURACIL) [Suspect]
     Active Substance: FLUOROURACIL
     Indication: BONE NEOPLASM
  2. CISPLATIN (CISPLATIN) (CISPLATIN) [Suspect]
     Active Substance: CISPLATIN
     Indication: BONE NEOPLASM

REACTIONS (7)
  - Renal failure [None]
  - Neoplasm progression [None]
  - Electrolyte imbalance [None]
  - Posterior reversible encephalopathy syndrome [None]
  - Brain oedema [None]
  - Renal hypertension [None]
  - Blindness [None]
